FAERS Safety Report 6287941-8 (Version None)
Quarter: 2009Q3

REPORT INFORMATION
  Report Type: 
  Country: None (occurrence: None)
  Receive Date: 20090729
  Receipt Date: 20090723
  Transmission Date: 20100115
  Serious: Yes (Death, Hospitalization)
  Sender: FDA-Public Use
  Company Number: FR-BRISTOL-MYERS SQUIBB COMPANY-14714042

PATIENT
  Age: 17 Year
  Sex: Female

DRUGS (20)
  1. AMIKLIN INJ [Suspect]
     Indication: ESCHERICHIA INFECTION
     Route: 042
     Dates: start: 20081225
  2. ENDOXAN [Suspect]
     Indication: SJOGREN'S SYNDROME
     Route: 042
     Dates: start: 20081211
  3. PANTOPRAZOLE SODIUM [Suspect]
     Indication: PROPHYLAXIS AGAINST GASTROINTESTINAL ULCER
     Route: 042
     Dates: start: 20081201
  4. GARDENAL [Suspect]
     Indication: EPILEPSY
     Route: 042
     Dates: start: 20081201
  5. TAZOCILLINE [Suspect]
     Indication: ESCHERICHIA INFECTION
     Route: 042
     Dates: start: 20081225
  6. VANCOMYCIN [Suspect]
     Indication: STAPHYLOCOCCAL INFECTION
     Route: 042
     Dates: start: 20081201
  7. DIPRIVAN [Suspect]
     Indication: SEDATION
     Route: 042
     Dates: start: 20081218
  8. PENTOTHAL [Suspect]
     Indication: SEDATION
     Route: 042
     Dates: start: 20081208
  9. DEPAKENE [Suspect]
     Indication: EPILEPSY
     Route: 042
     Dates: start: 20081226
  10. KEPPRA [Suspect]
     Indication: EPILEPSY
     Route: 042
     Dates: start: 20081206
  11. URBANYL [Suspect]
     Indication: EPILEPSY
     Route: 042
     Dates: start: 20081215
  12. FOSPHENYTOIN SODIUM [Suspect]
     Indication: EPILEPSY
     Route: 042
     Dates: start: 20081209
  13. SUFENTA PRESERVATIVE FREE [Suspect]
     Indication: SEDATION
     Route: 042
     Dates: start: 20081129, end: 20081225
  14. MIDAZOLAM [Concomitant]
     Indication: SEDATION
     Route: 042
     Dates: start: 20081128, end: 20081209
  15. NEUPOGEN [Concomitant]
     Dates: start: 20081201
  16. ACETAMINOPHEN [Concomitant]
  17. NEOSTIGMINE [Concomitant]
     Dates: start: 20081101
  18. NORADRENALINE [Concomitant]
  19. DUPHALAC [Concomitant]
  20. SOLU-MEDROL [Concomitant]

REACTIONS (4)
  - AGRANULOCYTOSIS [None]
  - HISTIOCYTOSIS HAEMATOPHAGIC [None]
  - PANCYTOPENIA [None]
  - SEPTIC SHOCK [None]
